FAERS Safety Report 7006415-X (Version None)
Quarter: 2010Q3

REPORT INFORMATION
  Report Type: 
  Country: None (occurrence: None)
  Receive Date: 20100921
  Receipt Date: 20100907
  Transmission Date: 20110219
  Serious: Yes (Life-Threatening, Hospitalization, Other)
  Sender: FDA-Public Use
  Company Number: GB-GENENTECH-305458

PATIENT
  Sex: Male

DRUGS (1)
  1. LUCENTIS [Suspect]
     Indication: MACULAR DEGENERATION
     Dosage: 1 DF, SINGLE
     Route: 031

REACTIONS (3)
  - CEREBROVASCULAR ACCIDENT [None]
  - CONGESTIVE CARDIOMYOPATHY [None]
  - TRANSIENT ISCHAEMIC ATTACK [None]
